FAERS Safety Report 13537722 (Version 2)
Quarter: 2017Q2

REPORT INFORMATION
  Report Type: Report from Study
  Country: US (occurrence: US)
  Receive Date: 20170511
  Receipt Date: 20170609
  Transmission Date: 20170830
  Serious: Yes (Death, Hospitalization, Other)
  Sender: FDA-Public Use
  Company Number: US-ACTELION-A-US2017-153608

PATIENT
  Age: 35 Year
  Sex: Female

DRUGS (14)
  1. BICITRA [Concomitant]
     Active Substance: CITRIC ACID, 1-STEARYL ESTER\SODIUM CITRATE
  2. REMODULIN [Concomitant]
     Active Substance: TREPROSTINIL
     Dosage: 100 NG/KG, PER MIN
     Route: 042
  3. VITAMIN D [Concomitant]
     Active Substance: CHOLECALCIFEROL
  4. LANSOPRAZOLE. [Concomitant]
     Active Substance: LANSOPRAZOLE
  5. LEVOTHYROXINE. [Concomitant]
     Active Substance: LEVOTHYROXINE
  6. PHENERGAN [Concomitant]
     Active Substance: PROMETHAZINE HYDROCHLORIDE
  7. ZINC. [Concomitant]
     Active Substance: ZINC
  8. ALPRAZOLAM. [Concomitant]
     Active Substance: ALPRAZOLAM
  9. LORATADINE. [Concomitant]
     Active Substance: LORATADINE
  10. CORTEF [Concomitant]
     Active Substance: HYDROCORTISONE
  11. OPSUMIT [Suspect]
     Active Substance: MACITENTAN
     Indication: PORTOPULMONARY HYPERTENSION
     Dosage: 10 MG, QD
     Route: 048
     Dates: start: 20170419, end: 20170429
  12. VITAMIN A [Concomitant]
     Active Substance: VITAMIN A
  13. MIDODRINE [Concomitant]
     Active Substance: MIDODRINE
  14. HYDROMORPHONE [Concomitant]
     Active Substance: HYDROMORPHONE

REACTIONS (6)
  - Hypotension [Recovering/Resolving]
  - Fluid overload [Unknown]
  - Condition aggravated [Recovering/Resolving]
  - Chronic hepatic failure [Unknown]
  - Portopulmonary hypertension [Fatal]
  - Ascites [Unknown]
